FAERS Safety Report 14782252 (Version 2)
Quarter: 2018Q2

REPORT INFORMATION
  Report Type: Report from Study
  Country: US (occurrence: US)
  Receive Date: 20180420
  Receipt Date: 20180502
  Transmission Date: 20180711
  Serious: Yes (Hospitalization, Other)
  Sender: FDA-Public Use
  Company Number: US-GILEAD-2018-0333984

PATIENT
  Age: 65 Year
  Sex: Male
  Weight: 94.79 kg

DRUGS (8)
  1. AMBRISENTAN [Suspect]
     Active Substance: AMBRISENTAN
     Indication: PULMONARY HYPERTENSION
     Dosage: 10 MG, UNK
     Route: 048
  2. SILDENAFIL. [Concomitant]
     Active Substance: SILDENAFIL
  3. AMLODIPINE [Concomitant]
     Active Substance: AMLODIPINE BESYLATE
  4. NEXIUM [Concomitant]
     Active Substance: ESOMEPRAZOLE MAGNESIUM
  5. LASIX [Concomitant]
     Active Substance: FUROSEMIDE
  6. LISINOPRIL. [Concomitant]
     Active Substance: LISINOPRIL
  7. UPTRAVI [Concomitant]
     Active Substance: SELEXIPAG
  8. IMURAN [Concomitant]
     Active Substance: AZATHIOPRINE

REACTIONS (2)
  - Oxygen saturation decreased [Unknown]
  - Pneumonia [Not Recovered/Not Resolved]

NARRATIVE: CASE EVENT DATE: 20180411
